FAERS Safety Report 8911328 (Version 1)
Quarter: 2012Q4

REPORT INFORMATION
  Report Type: 
  Country: US (occurrence: US)
  Receive Date: 20121116
  Receipt Date: 20121116
  Transmission Date: 20130627
  Serious: No
  Sender: FDA-Public Use
  Company Number: US-GLAXOSMITHKLINE-A0997311A

PATIENT
  Age: 82 Year
  Sex: Male

DRUGS (2)
  1. VOTRIENT [Suspect]
     Indication: METASTASES TO CENTRAL NERVOUS SYSTEM
     Dosage: 200MG Per day
     Route: 048
     Dates: start: 20120905
  2. NO CONCURRENT MEDICATIONS [Concomitant]

REACTIONS (2)
  - Pain in extremity [Unknown]
  - Hyperaesthesia [Unknown]
